FAERS Safety Report 9942541 (Version 1)
Quarter: 2014Q1

REPORT INFORMATION
  Report Type: Report from Study
  Country: US (occurrence: US)
  Receive Date: 20140303
  Receipt Date: 20140303
  Transmission Date: 20141002
  Serious: No
  Sender: FDA-Public Use
  Company Number: US-ABBVIE-13P-163-1044409-00

PATIENT
  Sex: Female

DRUGS (7)
  1. HUMIRA [Suspect]
     Indication: RHEUMATOID ARTHRITIS
  2. OMEPRAZOLE [Concomitant]
     Indication: DYSPEPSIA
     Dosage: 20MG DAILY
  3. FOLIC ACID [Concomitant]
     Indication: PRODUCT USED FOR UNKNOWN INDICATION
     Dosage: 1MG DAILY
  4. OMEGA 3 FISH OIL [Concomitant]
     Indication: PRODUCT USED FOR UNKNOWN INDICATION
     Dosage: 1000MG DAILY
  5. WOMEN^S MULTI-VITAMIN [Concomitant]
     Indication: NUTRITIONAL SUPPLEMENTATION
     Dosage: DAILY
  6. PREDNISONE [Concomitant]
     Dosage: TAPERED DOSE
  7. METHOTREXATE [Concomitant]

REACTIONS (6)
  - Rheumatoid arthritis [Not Recovered/Not Resolved]
  - Palpitations [Not Recovered/Not Resolved]
  - Palpitations [Not Recovered/Not Resolved]
  - Hypoaesthesia [Not Recovered/Not Resolved]
  - Muscle spasms [Not Recovered/Not Resolved]
  - Drug dose omission [Not Recovered/Not Resolved]
